FAERS Safety Report 5389227-2 (Version None)
Quarter: 2007Q3

REPORT INFORMATION
  Report Type: 
  Country: None (occurrence: None)
  Receive Date: 20070717
  Receipt Date: 20070711
  Transmission Date: 20080115
  Serious: Yes (Death, Hospitalization, Congenital Anomaly)
  Sender: FDA-Public Use
  Company Number: A0620719A

PATIENT
  Sex: Male

DRUGS (1)
  1. PAXIL [Suspect]
     Indication: MATERNAL CONDITION AFFECTING FOETUS

REACTIONS (4)
  - CONGENITAL ANOMALY [None]
  - CONGENITAL PULMONARY ARTERY ANOMALY [None]
  - DEFORMITY [None]
  - DRUG EXPOSURE DURING PREGNANCY [None]
